FAERS Safety Report 4663544-3 (Version None)
Quarter: 2005Q2

REPORT INFORMATION
  Report Type: 
  Country: None (occurrence: None)
  Receive Date: 20050517
  Receipt Date: 20050504
  Transmission Date: 20051028
  Serious: Yes (Other)
  Sender: FDA-Public Use
  Company Number: CH-GLAXOSMITHKLINE-B0380858A

PATIENT
  Age: 15 Year
  Sex: Female
  Weight: 60 kg

DRUGS (3)
  1. AUGMENTIN [Suspect]
     Dosage: 1.2MG THREE TIMES PER DAY
     Route: 042
     Dates: start: 20050309, end: 20050312
  2. ZOFRAN [Suspect]
     Indication: NAUSEA
     Dosage: 4MG AS REQUIRED
     Route: 042
     Dates: start: 20050309, end: 20050313
  3. PERFALGAN [Concomitant]
     Indication: PAIN
     Dosage: 1G FOUR TIMES PER DAY
     Route: 042
     Dates: start: 20050309, end: 20050311

REACTIONS (2)
  - MEDICATION ERROR [None]
  - PROCEDURAL SITE REACTION [None]
